FAERS Safety Report 4525671-0 (Version None)
Quarter: 2004Q4

REPORT INFORMATION
  Report Type: 
  Country: None (occurrence: None)
  Receive Date: 20041116
  Receipt Date: 20041007
  Transmission Date: 20050328
  Serious: No
  Sender: FDA-Public Use
  Company Number: S04-USA-06743-01

PATIENT
  Age: 58 Year
  Sex: Female

DRUGS (9)
  1. NAMENDA [Suspect]
     Indication: AMNESIA
     Dosage: 10 MG QD PO
     Route: 048
     Dates: start: 20040101, end: 20040101
  2. NAMENDA [Suspect]
     Indication: AMNESIA
     Dosage: 10 MG BID PO
     Route: 048
     Dates: start: 20040101
  3. NAMENDA [Suspect]
     Indication: AMNESIA
     Dates: start: 20040827, end: 20040101
  4. ZOLOFT [Concomitant]
  5. WELLBUTRIN [Concomitant]
  6. XANAX [Concomitant]
  7. LISINOPRIL [Concomitant]
  8. GLUCOTROL XL [Concomitant]
  9. HORMONE [Concomitant]

REACTIONS (5)
  - CONFUSIONAL STATE [None]
  - DIZZINESS [None]
  - EUPHORIC MOOD [None]
  - SOMNOLENCE [None]
  - TREMOR [None]
